FAERS Safety Report 6247218-3 (Version None)
Quarter: 2009Q2

REPORT INFORMATION
  Report Type: 
  Country: None (occurrence: None)
  Receive Date: 20090626
  Receipt Date: 20090615
  Transmission Date: 20091009
  Serious: Yes (Hospitalization, Other)
  Sender: FDA-Public Use
  Company Number: PT-PFIZER INC-2009228071

PATIENT
  Age: 50 Year

DRUGS (2)
  1. LYRICA [Suspect]
     Indication: POST HERPETIC NEURALGIA
     Dosage: UNK
  2. GABAPENTIN [Suspect]
     Dosage: UNK

REACTIONS (1)
  - RHABDOMYOLYSIS [None]
